FAERS Safety Report 8052381-8 (Version None)
Quarter: 2011Q4

REPORT INFORMATION
  Report Type: 
  Country: None (occurrence: None)
  Receive Date: 20111223
  Receipt Date: 20111206
  Transmission Date: 20120403
  Serious: Yes (Other)
  Sender: FDA-Public Use
  Company Number: 2011030610

PATIENT
  Age: 15 Year
  Sex: Female
  Weight: 63.9572 kg

DRUGS (20)
  1. VITAMIN D (EROGOCALCIFEROL) [Concomitant]
  2. AMITRIPTYLINE HCL [Concomitant]
  3. MULTIVITAMIN (DAILY MULTIVITAMIN) [Concomitant]
  4. DIFLUCAN [Concomitant]
  5. NAPROXEN [Concomitant]
  6. HIZENTRA [Suspect]
  7. CYMBALTA [Concomitant]
  8. VALTEX (VALACICLOVIR HYDROCHLORIDE) [Concomitant]
  9. HIZENTRA [Suspect]
     Indication: IMMUNODEFICIENCY COMMON VARIABLE
     Dosage: SEE IMAGE
     Route: 058
     Dates: start: 20111129
  10. HIZENTRA [Suspect]
     Indication: IMMUNODEFICIENCY COMMON VARIABLE
     Dosage: SEE IMAGE
     Route: 058
     Dates: start: 20111129
  11. HIZENTRA [Suspect]
     Indication: IMMUNODEFICIENCY COMMON VARIABLE
     Dosage: SEE IMAGE
     Route: 058
     Dates: start: 20110717
  12. ALBUTEROL [Concomitant]
  13. CONCERTA (METHYPREDNISOLONE HYDROCHLORIDE) [Concomitant]
  14. TYLENOL/CODEINE (GALENIC /PARACETAMOL/CODEINE/) [Concomitant]
  15. LYRICA [Concomitant]
  16. FLUDROCORTISONE ACETATE [Concomitant]
  17. GABAPENTIN [Concomitant]
  18. ZOFRAN [Concomitant]
  19. NEXIUM [Concomitant]
  20. CLARITIN [Concomitant]

REACTIONS (2)
  - LOCALISED INFECTION [None]
  - URINARY TRACT INFECTION [None]
